FAERS Safety Report 8412363-0 (Version None)
Quarter: 2012Q2

REPORT INFORMATION
  Report Type: 
  Country: None (occurrence: None)
  Receive Date: 20120605
  Receipt Date: 20120529
  Transmission Date: 20120825
  Serious: Yes (Hospitalization)
  Sender: FDA-Public Use
  Company Number: TR-ELI_LILLY_AND_COMPANY-TR201205009758

PATIENT
  Sex: Male
  Weight: 68 kg

DRUGS (5)
  1. CISPLATIN [Suspect]
     Indication: NON-SMALL CELL LUNG CANCER
     Dosage: 75 MG/M2, OTHER
     Route: 042
     Dates: start: 20120430
  2. FOLIC ACID [Concomitant]
     Dosage: UNK
     Dates: start: 20120428
  3. PEMETREXED [Suspect]
     Indication: NON-SMALL CELL LUNG CANCER
     Dosage: 500 MG/M2, OTHER
     Route: 042
     Dates: start: 20120430
  4. DEXAMETHASONE [Concomitant]
     Dosage: UNK
     Dates: start: 20120429, end: 20120505
  5. VITAMIN B-12 [Concomitant]
     Dosage: UNK
     Dates: start: 20120425

REACTIONS (1)
  - OESOPHAGITIS [None]
